FAERS Safety Report 23015313 (Version 1)
Quarter: 2023Q4

REPORT INFORMATION
  Report Type: Spontaneous
  Country: US (occurrence: US)
  Receive Date: 20231002
  Receipt Date: 20231002
  Transmission Date: 20240109
  Serious: No
  Sender: FDA-Public Use
  Company Number: US-Covis Pharma GmbH-2023COV01627

PATIENT
  Age: 86 Year

DRUGS (1)
  1. SULAR [Suspect]
     Active Substance: NISOLDIPINE
     Dates: start: 20230801

REACTIONS (1)
  - Oral mucosal blistering [Unknown]

NARRATIVE: CASE EVENT DATE: 20230801
